FAERS Safety Report 8350121-6 (Version None)
Quarter: 2012Q2

REPORT INFORMATION
  Report Type: 
  Country: None (occurrence: None)
  Receive Date: 20120510
  Receipt Date: 20120507
  Transmission Date: 20120825
  Serious: Yes (Death)
  Sender: FDA-Public Use
  Company Number: ES-ROCHE-1059063

PATIENT
  Age: 68 Year
  Sex: Female

DRUGS (1)
  1. MABTHERA [Suspect]
     Indication: PULMONARY FIBROSIS
     Dosage: LAST DOSE WAS MAR/2012
     Route: 042

REACTIONS (2)
  - CYTOMEGALOVIRUS INFECTION [None]
  - INFECTION [None]
